FAERS Safety Report 4785341-0 (Version None)
Quarter: 2005Q3

REPORT INFORMATION
  Report Type: 
  Country: None (occurrence: None)
  Receive Date: 20050914
  Receipt Date: 20040908
  Transmission Date: 20060218
  Serious: Yes (Death)
  Sender: FDA-Public Use
  Company Number: 163-20785-04050601

PATIENT
  Age: 85 Year
  Sex: Female

DRUGS (8)
  1. THALOMID [Suspect]
     Indication: MULTIPLE MYELOMA
     Dosage: 50 MG, DAILY, ORAL; SEE IMAGE
     Route: 048
     Dates: start: 20040515, end: 20040527
  2. THALOMID [Suspect]
     Indication: MULTIPLE MYELOMA
     Dosage: 50 MG, DAILY, ORAL; SEE IMAGE
     Route: 048
     Dates: start: 20040527, end: 20040617
  3. PAIN MEDICATION (ANALGESICS) [Concomitant]
  4. LIPITOR [Concomitant]
  5. LOPRESSOR [Concomitant]
  6. RANITIDINE [Concomitant]
  7. FE (IRON) [Concomitant]
  8. LORAZEPAM [Concomitant]

REACTIONS (3)
  - DEATH [None]
  - RASH ERYTHEMATOUS [None]
  - SOMNOLENCE [None]
